FAERS Safety Report 5176410-4 (Version None)
Quarter: 2006Q4

REPORT INFORMATION
  Report Type: 
  Country: None (occurrence: None)
  Receive Date: 20061207
  Receipt Date: 20061127
  Transmission Date: 20070319
  Serious: Yes (Hospitalization)
  Sender: FDA-Public Use
  Company Number: 2006BH013303

PATIENT
  Age: 55 Year
  Sex: Male
  Weight: 75 kg

DRUGS (2)
  1. EXTRANEAL [Suspect]
     Indication: PERITONEAL DIALYSIS
     Dosage: 1200 ML; EVERY DAY; IP
     Dates: start: 20060424, end: 20060906
  2. ETANERCEPT [Concomitant]

REACTIONS (4)
  - AGGRESSION [None]
  - EUPHORIC MOOD [None]
  - PARANOIA [None]
  - PSYCHOTIC DISORDER [None]
